FAERS Safety Report 7656883-5 (Version None)
Quarter: 2011Q3

REPORT INFORMATION
  Report Type: 
  Country: None (occurrence: None)
  Receive Date: 20110804
  Receipt Date: 20110731
  Transmission Date: 20111222
  Serious: Yes (Other)
  Sender: FDA-Public Use
  Company Number: US-PFIZER INC-2010106434

PATIENT
  Sex: Male
  Weight: 69.853 kg

DRUGS (13)
  1. LYRICA [Suspect]
     Indication: NEUROPATHY PERIPHERAL
     Dosage: 50 MG, 3X/DAY
     Route: 048
     Dates: start: 20100726
  2. DEXTROAMPHETAMINE [Concomitant]
     Indication: DEPRESSION
     Dosage: UNK
  3. LYRICA [Suspect]
     Indication: AKINESIA
     Dosage: 50 MG, 2X/DAY
     Route: 048
     Dates: start: 20100701
  4. NORVASC [Concomitant]
     Indication: HYPERTENSION
     Dosage: 10 MG, UNK
  5. LITHIUM [Concomitant]
     Dosage: 450 IU, UNK
  6. LYRICA [Suspect]
     Indication: NEURALGIA
     Dosage: 800 MG, 1X/DAY
     Route: 048
     Dates: start: 20100801
  7. LYRICA [Suspect]
     Dosage: 450 MG, 1X/DAY
     Route: 048
     Dates: start: 20101001
  8. TETRABENAZINE [Concomitant]
     Indication: DYSKINESIA
  9. LEVOTHYROXINE [Concomitant]
     Indication: HYPOTHYROIDISM
     Dosage: 50 MG, UNK
  10. LYRICA [Suspect]
     Dosage: 550 MG, 1X/DAY
     Route: 048
     Dates: start: 20101101
  11. TETRABENAZINE [Concomitant]
     Indication: MUSCLE SPASMS
     Dosage: UNK
  12. LYRICA [Suspect]
     Indication: MUSCLE SPASMS
     Dosage: 250 MG, 1X/DAY
     Route: 048
     Dates: start: 20100101
  13. DEXTROAMPHETAMINE [Concomitant]
     Indication: ASTHENIA

REACTIONS (15)
  - MAJOR DEPRESSION [None]
  - CONVULSION [None]
  - LETHARGY [None]
  - PAIN [None]
  - DYSKINESIA [None]
  - DRUG INEFFECTIVE [None]
  - MOOD ALTERED [None]
  - AGITATION [None]
  - POOR QUALITY SLEEP [None]
  - IRRITABILITY [None]
  - DRUG EFFECT DECREASED [None]
  - FLATULENCE [None]
  - HYPERTHYROIDISM [None]
  - HYPERVIGILANCE [None]
  - INCORRECT DOSE ADMINISTERED [None]
